FAERS Safety Report 10337255 (Version 1)
Quarter: 2014Q3

REPORT INFORMATION
  Report Type: Spontaneous
  Country: IT (occurrence: IT)
  Receive Date: 20140723
  Receipt Date: 20140723
  Transmission Date: 20150326
  Serious: Yes (Hospitalization)
  Sender: FDA-Public Use
  Company Number: IT-TEVA-495179ISR

PATIENT
  Age: 77 Year
  Sex: Male

DRUGS (1)
  1. OXALIPLATINO TEVA [Suspect]
     Active Substance: OXALIPLATIN
     Indication: ADENOCARCINOMA OF COLON
     Dosage: 110.3 MILLIGRAM DAILY;
     Dates: start: 20140409, end: 20140604

REACTIONS (4)
  - Peripheral pulse decreased [Recovered/Resolved]
  - Oxygen saturation decreased [Recovered/Resolved]
  - Erythema [Recovered/Resolved]
  - Blood pressure decreased [Recovered/Resolved]

NARRATIVE: CASE EVENT DATE: 20140604
